FAERS Safety Report 14334578 (Version 1)
Quarter: 2017Q4

REPORT INFORMATION
  Report Type: Report from Study
  Country: US (occurrence: US)
  Receive Date: 20171228
  Receipt Date: 20171228
  Transmission Date: 20180321
  Serious: Yes (Other)
  Sender: FDA-Public Use
  Company Number: US-GILEAD-2017-0306575

PATIENT
  Age: 63 Year
  Sex: Male

DRUGS (16)
  1. RANOLAZINE. [Suspect]
     Active Substance: RANOLAZINE
     Indication: ANGINA PECTORIS
     Dosage: 500 MG, BID
     Route: 048
     Dates: start: 20171023, end: 201711
  2. RANOLAZINE. [Suspect]
     Active Substance: RANOLAZINE
     Dosage: PREVIOUS
     Route: 065
  3. PLAVIX [Concomitant]
     Active Substance: CLOPIDOGREL BISULFATE
  4. ISOSORBIDE MONONITRATE. [Concomitant]
     Active Substance: ISOSORBIDE MONONITRATE
  5. LISINOPRIL. [Concomitant]
     Active Substance: LISINOPRIL
  6. RANOLAZINE. [Suspect]
     Active Substance: RANOLAZINE
     Dosage: 250 MG IN AM AND 500 MG IN PM
     Route: 048
     Dates: start: 201711
  7. METOPROLOL. [Concomitant]
     Active Substance: METOPROLOL
  8. SPIRIVA [Concomitant]
     Active Substance: TIOTROPIUM BROMIDE MONOHYDRATE
  9. TRAZODONE [Concomitant]
     Active Substance: TRAZODONE HYDROCHLORIDE
  10. LEVOTHYROXINE. [Concomitant]
     Active Substance: LEVOTHYROXINE
  11. ANORO ELLIPTA [Concomitant]
     Active Substance: UMECLIDINIUM BROMIDE\VILANTEROL TRIFENATATE
  12. ATORVASTATIN [Concomitant]
     Active Substance: ATORVASTATIN
     Indication: BLOOD CHOLESTEROL ABNORMAL
  13. ADVAIR HFA [Concomitant]
     Active Substance: FLUTICASONE PROPIONATE\SALMETEROL XINAFOATE
  14. ALBUTEROL                          /00139501/ [Concomitant]
     Active Substance: ALBUTEROL
     Indication: WHEEZING
  15. IPRATROPIUM [Concomitant]
     Active Substance: IPRATROPIUM
  16. PROAIR HFA [Concomitant]
     Active Substance: ALBUTEROL SULFATE
     Indication: DYSPNOEA

REACTIONS (8)
  - Off label use [Not Recovered/Not Resolved]
  - Type V hyperlipidaemia [Unknown]
  - Fatigue [Unknown]
  - Product use issue [Recovered/Resolved]
  - Nasopharyngitis [Unknown]
  - Syncope [Recovered/Resolved]
  - Hypothyroidism [Unknown]
  - Orthostatic hypotension [Unknown]

NARRATIVE: CASE EVENT DATE: 201711
